FAERS Safety Report 13671848 (Version 1)
Quarter: 2017Q2

REPORT INFORMATION
  Report Type: Other
  Country: JP (occurrence: JP)
  Receive Date: 20170620
  Receipt Date: 20170620
  Transmission Date: 20170830
  Serious: No
  Sender: FDA-Public Use
  Company Number: JP-ACTELION-A-CH2017-155570

PATIENT
  Sex: Female
  Weight: 1.36 kg

DRUGS (5)
  1. SILDENAFIL. [Concomitant]
     Active Substance: SILDENAFIL
     Route: 064
  2. DOBUTAMINE [Concomitant]
     Active Substance: DOBUTAMINE\DOBUTAMINE HYDROCHLORIDE
     Route: 064
  3. BOSENTAN. [Suspect]
     Active Substance: BOSENTAN
     Indication: MATERNAL EXPOSURE DURING PREGNANCY
     Route: 064
  4. TADALAFIL [Concomitant]
     Active Substance: TADALAFIL
     Route: 064
  5. FLOLAN [Suspect]
     Active Substance: EPOPROSTENOL SODIUM
     Indication: PULMONARY ARTERIAL HYPERTENSION
     Dosage: UNK
     Route: 064

REACTIONS (2)
  - Maternal exposure during pregnancy [Unknown]
  - Premature baby [Unknown]
